FAERS Safety Report 10227599 (Version 1)
Quarter: 2014Q2

REPORT INFORMATION
  Report Type: Spontaneous
  Country: US (occurrence: None)
  Receive Date: 20140609
  Receipt Date: 20140609
  Transmission Date: 20141212
  Serious: Yes (Other)
  Sender: FDA-Public Use
  Company Number: None

PATIENT
  Age: 67 Year
  Sex: Male

DRUGS (1)
  1. XTANDI 40MG ASTELLAS [Suspect]
     Indication: PROSTATE CANCER METASTATIC
     Dosage: 160 MG (4 CAPSULES)
     Route: 048
     Dates: start: 20140515, end: 20140616

REACTIONS (4)
  - Influenza like illness [None]
  - Back pain [None]
  - Fatigue [None]
  - Dizziness [None]
